FAERS Safety Report 13573640 (Version 1)
Quarter: 2017Q2

REPORT INFORMATION
  Report Type: Spontaneous
  Country: DE (occurrence: DE)
  Receive Date: 20170523
  Receipt Date: 20170523
  Transmission Date: 20170830
  Serious: Yes (Hospitalization, Other)
  Sender: FDA-Public Use
  Company Number: DE-BAYER-2017-094063

PATIENT
  Sex: Female

DRUGS (2)
  1. MIRENA [Suspect]
     Active Substance: LEVONORGESTREL
     Dosage: 20 MCG/24HR, CONT
     Route: 015
     Dates: start: 20030325, end: 200904
  2. MIRENA [Suspect]
     Active Substance: LEVONORGESTREL
     Dosage: 20 MCG/24HR, CONT
     Route: 015
     Dates: start: 200904, end: 20130325

REACTIONS (69)
  - Back pain [Recovered/Resolved]
  - Memory impairment [Unknown]
  - Arrhythmia [Unknown]
  - Abdominal distension [Unknown]
  - Mucosal dryness [Unknown]
  - Middle insomnia [Unknown]
  - Psychiatric symptom [Unknown]
  - Autophobia [Unknown]
  - Stress [Unknown]
  - Alopecia [Unknown]
  - Leiomyoma [Unknown]
  - Skin hyperpigmentation [Unknown]
  - Asthenia [Unknown]
  - Performance status decreased [Unknown]
  - Loss of libido [Unknown]
  - Suspiciousness [Unknown]
  - Depersonalisation/derealisation disorder [Unknown]
  - Intentional self-injury [Unknown]
  - Suicidal ideation [Unknown]
  - Adrenal disorder [Not Recovered/Not Resolved]
  - Vision blurred [Unknown]
  - Vulvovaginal dryness [Unknown]
  - Hyperacusis [Unknown]
  - Micturition urgency [Unknown]
  - Raynaud^s phenomenon [Recovered/Resolved]
  - Impaired driving ability [Unknown]
  - Depression [Unknown]
  - Affect lability [Unknown]
  - Irritability [Unknown]
  - Contact lens intolerance [Unknown]
  - Postmenopause [Unknown]
  - Feeling abnormal [Unknown]
  - Autoimmune thyroiditis [Not Recovered/Not Resolved]
  - Weight increased [Unknown]
  - Mood swings [Unknown]
  - Fatigue [Unknown]
  - Dental discomfort [Unknown]
  - Personality change [Unknown]
  - Incontinence [Unknown]
  - Anxiety [Unknown]
  - Nausea [Recovered/Resolved]
  - Progesterone decreased [Not Recovered/Not Resolved]
  - Amenorrhoea [Not Recovered/Not Resolved]
  - Disturbance in attention [Unknown]
  - Nervousness [Unknown]
  - Constipation [Unknown]
  - Blood pressure abnormal [Unknown]
  - Tendon discomfort [Unknown]
  - Drug hypersensitivity [Unknown]
  - Hirsutism [Recovered/Resolved]
  - Acne [Recovered/Resolved]
  - Panic attack [Unknown]
  - Restlessness [Unknown]
  - Dizziness [Unknown]
  - Palpitations [Unknown]
  - Muscle tightness [Unknown]
  - Pain in extremity [Unknown]
  - Hot flush [Unknown]
  - Dyspnoea exertional [Unknown]
  - Impaired work ability [Unknown]
  - Diarrhoea [Unknown]
  - Mental impairment [Unknown]
  - Negativism [Unknown]
  - Obsessive rumination [Unknown]
  - Apathy [Unknown]
  - Anhedonia [Unknown]
  - Aggression [Unknown]
  - Social avoidant behaviour [Unknown]
  - Pelvic floor muscle weakness [Unknown]

NARRATIVE: CASE EVENT DATE: 200309
